FAERS Safety Report 7589470-8 (Version None)
Quarter: 2011Q3

REPORT INFORMATION
  Report Type: 
  Country: None (occurrence: None)
  Receive Date: 20110705
  Receipt Date: 20110622
  Transmission Date: 20111222
  Serious: Yes (Hospitalization)
  Sender: FDA-Public Use
  Company Number: DE-ROCHE-779352

PATIENT
  Sex: Male
  Weight: 68 kg

DRUGS (2)
  1. RIBAVIRIN [Suspect]
     Route: 048
     Dates: start: 20100611, end: 20101130
  2. PEGINTERFERON ALFA-2A [Suspect]
     Route: 058
     Dates: start: 20100611, end: 20101130

REACTIONS (3)
  - HYPOAESTHESIA [None]
  - PARAESTHESIA [None]
  - MULTIPLE SCLEROSIS [None]
